FAERS Safety Report 6750916-6 (Version None)
Quarter: 2010Q2

REPORT INFORMATION
  Report Type: 
  Country: None (occurrence: None)
  Receive Date: 20100602
  Receipt Date: 20100528
  Transmission Date: 20101027
  Serious: Yes (Life-Threatening, Other)
  Sender: FDA-Public Use
  Company Number: PHHY2010US33664

PATIENT
  Sex: Female

DRUGS (2)
  1. RECLAST [Suspect]
  2. MULTI-VITAMINS [Concomitant]

REACTIONS (8)
  - ARTHRALGIA [None]
  - FALL [None]
  - FEELING ABNORMAL [None]
  - HEAD INJURY [None]
  - PAIN [None]
  - SCREAMING [None]
  - SWELLING [None]
  - VEIN DISORDER [None]
